FAERS Safety Report 22002923 (Version 1)
Quarter: 2023Q1

REPORT INFORMATION
  Report Type: Spontaneous
  Country: BR (occurrence: None)
  Receive Date: 20230217
  Receipt Date: 20230217
  Transmission Date: 20230417
  Serious: Yes (Other)
  Sender: FDA-Public Use
  Company Number: BR-ROCHE-2120635

PATIENT
  Age: 47 Year
  Sex: Female

DRUGS (2)
  1. RIVOTRIL [Suspect]
     Active Substance: CLONAZEPAM
     Indication: Sleep disorder therapy
     Dosage: UNTIL 20 DROPS
     Route: 065
  2. RIVOTRIL [Suspect]
     Active Substance: CLONAZEPAM
     Route: 065

REACTIONS (8)
  - Diabetes mellitus [Unknown]
  - Product delivery mechanism issue [Unknown]
  - Sluggishness [Recovered/Resolved]
  - Accidental exposure to product [Unknown]
  - Insomnia [Unknown]
  - Agitation [Unknown]
  - Micturition urgency [Unknown]
  - Off label use [Unknown]

NARRATIVE: CASE EVENT DATE: 20180427
